FAERS Safety Report 14002314 (Version 2)
Quarter: 2017Q3

REPORT INFORMATION
  Report Type: Spontaneous
  Country: US (occurrence: US)
  Receive Date: 20170922
  Receipt Date: 20170928
  Transmission Date: 20171128
  Serious: No
  Sender: FDA-Public Use
  Company Number: US-CELGENEUS-USA-20170904485

PATIENT
  Age: 75 Year
  Sex: Female

DRUGS (5)
  1. DEXAMETHASONE. [Concomitant]
     Active Substance: DEXAMETHASONE
     Indication: PLASMA CELL MYELOMA
     Dosage: 20 MILLIGRAM
     Route: 065
     Dates: start: 20160514
  2. REVLIMID [Suspect]
     Active Substance: LENALIDOMIDE
     Indication: PLASMA CELL MYELOMA
     Dosage: 10 MILLIGRAM
     Route: 048
     Dates: start: 20160525
  3. VITAMIN B12 [Concomitant]
     Active Substance: CYANOCOBALAMIN
     Indication: VITAMIN B12 DECREASED
     Dosage: 1000 MICROGRAM
     Route: 065
     Dates: start: 20160503
  4. ASA [Concomitant]
     Active Substance: ASPIRIN
     Indication: ANTICOAGULANT THERAPY
     Dosage: 325 MILLIGRAM
     Route: 065
     Dates: start: 20160525
  5. SIMVASTATIN. [Concomitant]
     Active Substance: SIMVASTATIN
     Indication: BLOOD CHOLESTEROL
     Dosage: 20 MILLIGRAM
     Route: 065

REACTIONS (2)
  - Seasonal allergy [Recovered/Resolved]
  - Viral upper respiratory tract infection [Recovered/Resolved]

NARRATIVE: CASE EVENT DATE: 20170912
